FAERS Safety Report 15434465 (Version 1)
Quarter: 2018Q3

REPORT INFORMATION
  Report Type: Report from Study
  Country: BR (occurrence: BR)
  Receive Date: 20180927
  Receipt Date: 20180927
  Transmission Date: 20181010
  Serious: Yes (Life-Threatening)
  Sender: FDA-Public Use
  Company Number: PHHY2018BR076513

PATIENT
  Age: 50 Year
  Sex: Female
  Weight: 65 kg

DRUGS (5)
  1. COSENTYX [Suspect]
     Active Substance: SECUKINUMAB
     Dosage: UNK
     Route: 065
     Dates: start: 20180421
  2. COSENTYX [Suspect]
     Active Substance: SECUKINUMAB
     Dosage: UNK
     Route: 065
     Dates: start: 20180410
  3. COSENTYX [Suspect]
     Active Substance: SECUKINUMAB
     Dosage: UNK
     Route: 065
     Dates: start: 20180417
  4. COSENTYX [Suspect]
     Active Substance: SECUKINUMAB
     Indication: PSORIATIC ARTHROPATHY
     Dosage: 300 MG, UNK
     Route: 058
     Dates: start: 20180403
  5. COSENTYX [Suspect]
     Active Substance: SECUKINUMAB
     Dosage: UNK
     Route: 065
     Dates: start: 20180502, end: 20180704

REACTIONS (27)
  - Reflux gastritis [Recovering/Resolving]
  - Oropharyngeal pain [Unknown]
  - Dysphonia [Not Recovered/Not Resolved]
  - Nausea [Recovering/Resolving]
  - Lacrimation increased [Recovering/Resolving]
  - Weight decreased [Recovering/Resolving]
  - Headache [Unknown]
  - Pyrexia [Recovering/Resolving]
  - Aphthous ulcer [Recovering/Resolving]
  - Pain [Recovering/Resolving]
  - Cough [Recovering/Resolving]
  - Fatigue [Unknown]
  - Somnolence [Recovered/Resolved]
  - Drug intolerance [Unknown]
  - Depression [Recovering/Resolving]
  - Paraesthesia [Unknown]
  - Malaise [Recovering/Resolving]
  - Diarrhoea [Unknown]
  - Eating disorder [Recovering/Resolving]
  - Pruritus [Unknown]
  - Feeling of despair [Recovering/Resolving]
  - Dry eye [Recovering/Resolving]
  - Back pain [Recovering/Resolving]
  - Tremor [Recovering/Resolving]
  - Sleep disorder [Recovering/Resolving]
  - Ear pain [Recovering/Resolving]
  - Nasopharyngitis [Recovered/Resolved]

NARRATIVE: CASE EVENT DATE: 20180403
